FAERS Safety Report 4406660-3 (Version None)
Quarter: 2004Q3

REPORT INFORMATION
  Report Type: 
  Country: None (occurrence: None)
  Receive Date: 20040720
  Receipt Date: 20040706
  Transmission Date: 20050211
  Serious: Yes (Hospitalization)
  Sender: FDA-Public Use
  Company Number: HQWYE960409JUL04

PATIENT
  Age: 70 Year
  Sex: Male

DRUGS (1)
  1. DIAMOX [Suspect]
     Dosage: ORAL
     Route: 048

REACTIONS (7)
  - CONFUSIONAL STATE [None]
  - HYPERCAPNIA [None]
  - HYPOXIA [None]
  - METABOLIC ACIDOSIS [None]
  - SLEEP APNOEA SYNDROME [None]
  - SNORING [None]
  - SOMNOLENCE [None]
